FAERS Safety Report 19264985 (Version 1)
Quarter: 2021Q2

REPORT INFORMATION
  Report Type: Spontaneous
  Country: CA (occurrence: CA)
  Receive Date: 20210517
  Receipt Date: 20210517
  Transmission Date: 20210717
  Serious: Yes (Life-Threatening, Other)
  Sender: FDA-Public Use
  Company Number: CA-ABBVIE-21K-028-3906553-00

PATIENT
  Age: 72 Year
  Sex: Female
  Weight: 47.2 kg

DRUGS (15)
  1. MAGNESIUM [Concomitant]
     Active Substance: MAGNESIUM
     Indication: PRODUCT USED FOR UNKNOWN INDICATION
  2. SODIUM [Concomitant]
     Active Substance: SODIUM
     Indication: PRODUCT USED FOR UNKNOWN INDICATION
  3. INFLECTRA [Suspect]
     Active Substance: INFLIXIMAB-DYYB
     Indication: PSORIATIC ARTHROPATHY
     Route: 065
     Dates: start: 20210331, end: 20210331
  4. ETANERCEPT [Suspect]
     Active Substance: ETANERCEPT
     Indication: PRODUCT USED FOR UNKNOWN INDICATION
     Route: 065
  5. VITAMIN D [Concomitant]
     Active Substance: VITAMIN D NOS
     Indication: PRODUCT USED FOR UNKNOWN INDICATION
     Dosage: 2000?4000 IU
  6. LAMIVUDINE. [Concomitant]
     Active Substance: LAMIVUDINE
     Indication: PRODUCT USED FOR UNKNOWN INDICATION
  7. HUMIRA [Suspect]
     Active Substance: ADALIMUMAB
     Indication: PRODUCT USED FOR UNKNOWN INDICATION
     Route: 058
  8. INFLECTRA [Suspect]
     Active Substance: INFLIXIMAB-DYYB
     Indication: ARTHRITIS
     Route: 065
     Dates: start: 20210218, end: 2021
  9. TALTZ [Suspect]
     Active Substance: IXEKIZUMAB
     Indication: PRODUCT USED FOR UNKNOWN INDICATION
     Route: 065
  10. COSENTYX [Suspect]
     Active Substance: SECUKINUMAB
     Indication: PRODUCT USED FOR UNKNOWN INDICATION
     Route: 065
  11. PREMARIN [Concomitant]
     Active Substance: ESTROGENS, CONJUGATED
     Indication: PRODUCT USED FOR UNKNOWN INDICATION
     Route: 067
  12. IRON [Concomitant]
     Active Substance: IRON
     Indication: PRODUCT USED FOR UNKNOWN INDICATION
  13. VITAMIN B12 [Concomitant]
     Active Substance: CYANOCOBALAMIN
     Indication: PRODUCT USED FOR UNKNOWN INDICATION
  14. BIO THY [Concomitant]
     Indication: SUPPLEMENTATION THERAPY
  15. PREDNISONE. [Concomitant]
     Active Substance: PREDNISONE
     Indication: PRODUCT USED FOR UNKNOWN INDICATION
     Route: 048
     Dates: end: 2021

REACTIONS (27)
  - Lymphadenopathy [Unknown]
  - Malaise [Unknown]
  - Anaemia [Unknown]
  - Myalgia [Unknown]
  - Pain [Unknown]
  - Drug ineffective [Unknown]
  - Dizziness [Recovered/Resolved]
  - Hyperhidrosis [Unknown]
  - Chest pain [Unknown]
  - Therapeutic product effect decreased [Unknown]
  - Bowel movement irregularity [Recovered/Resolved]
  - Flushing [Recovered/Resolved]
  - Therapeutic product effect incomplete [Unknown]
  - Appetite disorder [Recovering/Resolving]
  - Blood albumin decreased [Unknown]
  - Musculoskeletal stiffness [Unknown]
  - Defaecation urgency [Unknown]
  - Restlessness [Unknown]
  - Weight decreased [Recovering/Resolving]
  - Arthralgia [Not Recovered/Not Resolved]
  - Chest discomfort [Recovered/Resolved]
  - Tendonitis [Unknown]
  - Chronic disease [Unknown]
  - Nausea [Recovered/Resolved]
  - Enthesopathy [Unknown]
  - Gastrointestinal disorder [Unknown]
  - Red blood cells urine [Unknown]

NARRATIVE: CASE EVENT DATE: 20210331
